FAERS Safety Report 8268847-1 (Version None)
Quarter: 2012Q2

REPORT INFORMATION
  Report Type: 
  Country: None (occurrence: None)
  Receive Date: 20120409
  Receipt Date: 20120409
  Transmission Date: 20120825
  Serious: Yes (Other)
  Sender: FDA-Public Use
  Company Number: None

PATIENT
  Age: 68 Year
  Sex: Male
  Weight: 88.45 kg

DRUGS (2)
  1. COLACE [Concomitant]
  2. COLACE [Suspect]
     Indication: CONSTIPATION
     Dosage: 2 CAPSULES
     Route: 048
     Dates: start: 20120328, end: 20120502

REACTIONS (2)
  - RECTAL HAEMORRHAGE [None]
  - ANORECTAL DISCOMFORT [None]
